FAERS Safety Report 7051098-6 (Version None)
Quarter: 2010Q4

REPORT INFORMATION
  Report Type: 
  Country: None (occurrence: None)
  Receive Date: 20101019
  Receipt Date: 20101015
  Transmission Date: 20110411
  Serious: Yes (Life-Threatening, Hospitalization)
  Sender: FDA-Public Use
  Company Number: DE-JNJFOC-20070700068

PATIENT
  Age: 16 Year
  Sex: Female

DRUGS (2)
  1. IBUPROFEN [Suspect]
     Indication: SUICIDE ATTEMPT
     Dosage: DOSE UNKNOWN
  2. BETADORM D [Suspect]
     Indication: SUICIDE ATTEMPT
     Dosage: APPROXIMATELY 5000MG

REACTIONS (6)
  - MULTIPLE DRUG OVERDOSE INTENTIONAL [None]
  - OEDEMA PERIPHERAL [None]
  - PANCREATIC PSEUDOCYST [None]
  - PANCREATITIS ACUTE [None]
  - RHABDOMYOLYSIS [None]
  - SUICIDE ATTEMPT [None]
